FAERS Safety Report 5312614-5 (Version None)
Quarter: 2007Q2

REPORT INFORMATION
  Report Type: 
  Country: None (occurrence: None)
  Receive Date: 20070430
  Receipt Date: 20061227
  Transmission Date: 20071010
  Serious: Yes (Other)
  Sender: FDA-Public Use
  Company Number: 2006UW28607

PATIENT
  Age: 61 Year
  Sex: Female
  Weight: 66.7 kg

DRUGS (7)
  1. NEXIUM [Suspect]
     Indication: BARRETT'S OESOPHAGUS
     Route: 048
     Dates: start: 20010101
  2. CALCIUM WITH VITAMIN D [Concomitant]
  3. SPIRONOLACTONE [Concomitant]
  4. ALDACTONE [Concomitant]
  5. SINGULAIR [Concomitant]
  6. ZOCOR [Concomitant]
  7. NITROGLYCERIN [Concomitant]

REACTIONS (2)
  - GASTRIC POLYPS [None]
  - OSTEOPOROSIS [None]
